FAERS Safety Report 20716284 (Version 1)
Quarter: 2022Q2

REPORT INFORMATION
  Report Type: Spontaneous
  Country: US (occurrence: US)
  Receive Date: 20220416
  Receipt Date: 20220416
  Transmission Date: 20220721
  Serious: No
  Sender: FDA-Public Use
  Company Number: US-ALLERGAN-2203623US

PATIENT
  Age: 22 Year
  Sex: Female
  Weight: 73.469 kg

DRUGS (1)
  1. LILETTA [Suspect]
     Active Substance: LEVONORGESTREL
     Indication: Product used for unknown indication
     Dosage: 52 MG, SINGLE
     Route: 015
     Dates: start: 20220124, end: 20220124

REACTIONS (1)
  - Procedural pain [Recovered/Resolved]

NARRATIVE: CASE EVENT DATE: 20220124
